FAERS Safety Report 7946039-0 (Version None)
Quarter: 2011Q4

REPORT INFORMATION
  Report Type: 
  Country: None (occurrence: None)
  Receive Date: 20111129
  Receipt Date: 20111123
  Transmission Date: 20120403
  Serious: Yes (Other)
  Sender: FDA-Public Use
  Company Number: US-GLAXOSMITHKLINE-A0937076A

PATIENT
  Age: 78 Year
  Sex: Female
  Weight: 84.5 kg

DRUGS (16)
  1. METFORMIN HCL [Concomitant]
  2. MULTI-VITAMIN [Concomitant]
  3. LOSARTAN POTASSIUM [Concomitant]
  4. PREDNISONE [Concomitant]
  5. GLIMEPIRIDE [Concomitant]
  6. PROMACTA [Suspect]
     Indication: PLATELET COUNT
     Dosage: 50MG PER DAY
     Route: 048
     Dates: start: 20110606
  7. FLUTICASONE PROPIONATE [Concomitant]
  8. ONDANSETRON [Concomitant]
  9. CALCIUM [Concomitant]
  10. ZEGERID [Concomitant]
  11. SIMVASTATIN [Concomitant]
  12. ACETAMINOPHEN [Concomitant]
  13. LEVOTHYROXINE SODIUM [Concomitant]
  14. IRON [Concomitant]
  15. PULMICORT [Concomitant]
  16. PROAIR HFA [Concomitant]

REACTIONS (4)
  - URETHRAL INJURY [None]
  - ABDOMINAL PAIN UPPER [None]
  - VAGINAL HAEMORRHAGE [None]
  - DIARRHOEA [None]
